FAERS Safety Report 10264861 (Version 1)
Quarter: 2014Q2

REPORT INFORMATION
  Report Type: Spontaneous
  Country: FR (occurrence: FR)
  Receive Date: 20140627
  Receipt Date: 20140627
  Transmission Date: 20141212
  Serious: Yes (Hospitalization)
  Sender: FDA-Public Use
  Company Number: FR-SA-2014SA080681

PATIENT
  Age: 86 Year
  Sex: Female

DRUGS (2)
  1. LOVENOX [Suspect]
     Indication: PRODUCT USED FOR UNKNOWN INDICATION
     Route: 058
     Dates: start: 20140412, end: 20140416
  2. VIT K ANTAGONISTS [Concomitant]
     Dates: start: 201404

REACTIONS (5)
  - Thrombophlebitis [Recovering/Resolving]
  - Pyrexia [Recovering/Resolving]
  - Tachycardia [Recovering/Resolving]
  - Phlebitis [Recovering/Resolving]
  - Heparin-induced thrombocytopenia [Recovered/Resolved]
